FAERS Safety Report 10903774 (Version 1)
Quarter: 2015Q1

REPORT INFORMATION
  Report Type: Spontaneous
  Country: ES (occurrence: ES)
  Receive Date: 20150311
  Receipt Date: 20150311
  Transmission Date: 20150721
  Serious: Yes (Other)
  Sender: FDA-Public Use
  Company Number: ES-ROCHE-1550142

PATIENT
  Age: 51 Year
  Sex: Male

DRUGS (4)
  1. LEVOFLOXACINO TEVA [Suspect]
     Active Substance: LEVOFLOXACIN
     Indication: PNEUMONIA
     Dosage: FREQUENCY TIME: 1 DAYS
     Route: 042
     Dates: start: 20150123, end: 20150130
  2. LEVOFLOXACINO TEVA [Suspect]
     Active Substance: LEVOFLOXACIN
     Indication: INFLUENZA
  3. TAMIFLU [Suspect]
     Active Substance: OSELTAMIVIR PHOSPHATE
     Indication: PNEUMONIA
     Dosage: 30 MG CAPSULAS DURAS, 10 CAPSULAS
     Route: 048
     Dates: start: 20150123, end: 20150130
  4. TAMIFLU [Suspect]
     Active Substance: OSELTAMIVIR PHOSPHATE
     Indication: INFLUENZA

REACTIONS (2)
  - Erythema [Recovered/Resolved]
  - Hepatitis cholestatic [Recovered/Resolved]

NARRATIVE: CASE EVENT DATE: 20150128
